FAERS Safety Report 16469217 (Version 1)
Quarter: 2019Q3

REPORT INFORMATION
  Report Type: Spontaneous
  Country: US (occurrence: US)
  Receive Date: 20190621
  Receipt Date: 20190621
  Transmission Date: 20191004
  Serious: No
  Sender: FDA-Public Use
  Company Number: None

PATIENT
  Age: 57 Year
  Sex: Female
  Weight: 113.4 kg

DRUGS (6)
  1. MAPAP 650 MG PO PRIOR INFUSION [Concomitant]
  2. PANZYGA [Suspect]
     Active Substance: HUMAN IMMUNOGLOBULIN G
     Indication: NEURALGIC AMYOTROPHY
     Dosage: ?          OTHER FREQUENCY:WEEKLY;?
     Route: 042
     Dates: start: 20190618, end: 20190618
  3. PREDNISONE 2.5 MG PO PRIOR INFUSION [Concomitant]
  4. PANZYGA [Suspect]
     Active Substance: HUMAN IMMUNOGLOBULIN G
     Indication: NEURALGIC AMYOTROPHY
     Dosage: ?          OTHER FREQUENCY:WEEKLY;?
     Route: 042
     Dates: start: 20190618, end: 20190618
  5. DIPHENHYDRAMINE  25 MG PO PRIOR INF. [Concomitant]
  6. ONDANSETRON 4 MG PO PRIOR INFUSION [Concomitant]

REACTIONS (6)
  - Cough [None]
  - Chest pain [None]
  - Wheezing [None]
  - Nausea [None]
  - Dyspnoea [None]
  - Throat tightness [None]

NARRATIVE: CASE EVENT DATE: 20190618
